FAERS Safety Report 10247320 (Version 1)
Quarter: 2014Q1

REPORT INFORMATION
  Report Type: Spontaneous
  Country: US (occurrence: None)
  Receive Date: 20140306
  Receipt Date: 20140306
  Transmission Date: 20141002
  Serious: Yes (Hospitalization, Other)
  Sender: FDA-Public Use
  Company Number: 163-21880-13031784

PATIENT
  Age: 80 Year
  Sex: Female
  Weight: 64.86 kg

DRUGS (24)
  1. REVLIMID (LENALIDOMIDE) (15 MILLIGRAM, CAPSULES) [Suspect]
     Indication: PLASMA CELL MYELOMA
     Dosage: 15 MG, 21 IN 21 D, PO  11/ 2008 - UNKNOWN THERAPY DATES
     Route: 048
     Dates: start: 200811
  2. LEVOTHYROXINE [Concomitant]
  3. ACYCLOVIR [Concomitant]
  4. DECADRON (DEXAMETHASONE) [Concomitant]
  5. TRAZODONE [Concomitant]
  6. PROCRIT (ERYTHROPOIETIN) [Concomitant]
  7. VELCADE (BORTEZOMIB) [Concomitant]
  8. FOLIC ACID [Concomitant]
  9. NORVASC (AMLODIPINE BESILATE) [Concomitant]
  10. LIPITOR (ATORVASTATIN) [Concomitant]
  11. CELEXA (CITALOPRAM HYDROBROMIDE) [Concomitant]
  12. VITAMIN B12 (CYANOCOBALAMIN) [Concomitant]
  13. VITAMIN D2 (ERGOCALCIFEROL) [Concomitant]
  14. ADVAIR DISKUS [Concomitant]
  15. DUONEB (COMBIVENT) [Concomitant]
  16. LISINOPRIL [Concomitant]
  17. PROTONIX (PANTOPRAZOLE) [Concomitant]
  18. TYLENOL (PARACETAMOL) [Concomitant]
  19. DULCOLAX (BISACODYL) [Concomitant]
  20. NORCO (VICODIN) [Concomitant]
  21. IMODIUM (LOPERAMIDE) [Concomitant]
  22. MILK OF MAGNESIA (MAGNESIA HYDROXIDE) [Concomitant]
  23. NITROGLYCERIN (GLYCERYL TRINITRATE) [Concomitant]
  24. BACTRIM BLOOD CELLS [Concomitant]

REACTIONS (2)
  - Pulmonary embolism [None]
  - Pneumonia [None]
